FAERS Safety Report 6669423-4 (Version None)
Quarter: 2010Q2

REPORT INFORMATION
  Report Type: 
  Country: None (occurrence: None)
  Receive Date: 20100406
  Receipt Date: 20100406
  Transmission Date: 20101027
  Serious: Yes (Death)
  Sender: FDA-Public Use
  Company Number: DE-WYE-G05877210

PATIENT
  Sex: Male

DRUGS (12)
  1. TORISEL [Suspect]
     Indication: METASTATIC RENAL CELL CARCINOMA
     Route: 042
     Dates: start: 20090423, end: 20090604
  2. TORISEL [Suspect]
     Route: 042
     Dates: start: 20090625, end: 20090625
  3. TORISEL [Suspect]
     Route: 042
     Dates: start: 20090709, end: 20090716
  4. TORISEL [Suspect]
     Route: 042
     Dates: start: 20090827, end: 20090917
  5. TORISEL [Suspect]
     Route: 042
     Dates: start: 20091001, end: 20091001
  6. TORISEL [Suspect]
     Route: 042
     Dates: start: 20091203, end: 20091203
  7. METOCLOPRAMIDE [Concomitant]
     Indication: PREMEDICATION
     Dosage: 10 MG PRIOR TO TORISEL ADMINISTRATION
     Dates: start: 20090423
  8. JURNISTA [Concomitant]
     Route: 048
  9. METAMIZOLE [Concomitant]
  10. MACROGOL/POTASSIUM CHLORIDE/SODIUM BICARBONATE/SODIUM CHLORIDE [Concomitant]
     Dosage: IF REQUIRED
  11. DIPHENHYDRAMINE HYDROCHLORIDE [Concomitant]
     Indication: PREMEDICATION
     Dosage: 40 MG PRIOR TO TORISEL ADMINISTRATION
     Dates: start: 20090423
  12. OMEPRAZOLE [Concomitant]

REACTIONS (3)
  - DISEASE PROGRESSION [None]
  - MALIGNANT NEOPLASM PROGRESSION [None]
  - RENAL CANCER METASTATIC [None]
